FAERS Safety Report 22102901 (Version 3)
Quarter: 2024Q1

REPORT INFORMATION
  Report Type: Spontaneous
  Country: US (occurrence: US)
  Receive Date: 20230316
  Receipt Date: 20240213
  Transmission Date: 20240410
  Serious: No
  Sender: FDA-Public Use
  Company Number: US-THERATECHNOLOGIES INC.-2022-THE-TES-000207

PATIENT

DRUGS (10)
  1. EGRIFTA SV [Suspect]
     Active Substance: TESAMORELIN ACETATE
     Indication: Lipodystrophy acquired
     Dosage: 1.4 MG (0.35 ML OF THE RECONSTITUTED SOLUTION), QD
     Route: 058
     Dates: start: 2021, end: 20240204
  2. TIVICAY [Concomitant]
     Active Substance: DOLUTEGRAVIR SODIUM
     Indication: Product used for unknown indication
     Dosage: 50 MG, QD
     Route: 048
     Dates: start: 20170807
  3. AMBIEN [Concomitant]
     Active Substance: ZOLPIDEM TARTRATE
     Indication: Product used for unknown indication
     Dosage: 10 MG, QD (AT BEDTIME)
     Route: 048
     Dates: start: 20220323
  4. VALTREX [Concomitant]
     Active Substance: VALACYCLOVIR HYDROCHLORIDE
     Indication: Product used for unknown indication
     Dosage: 1 TABLET, BID
     Route: 048
  5. CLONAZEPAM [Concomitant]
     Active Substance: CLONAZEPAM
     Indication: Product used for unknown indication
     Dosage: 1 MG, QD, PRN
     Route: 048
     Dates: start: 20220622
  6. OMEPRAZOLE [Concomitant]
     Active Substance: OMEPRAZOLE
     Indication: Product used for unknown indication
     Dosage: 20 MG, QD
     Route: 048
  7. CYMBALTA [Concomitant]
     Active Substance: DULOXETINE HYDROCHLORIDE
     Indication: Product used for unknown indication
     Dosage: 1 CAPSULE, QD
     Route: 048
  8. TAMSULOSIN [Concomitant]
     Active Substance: TAMSULOSIN
     Indication: Product used for unknown indication
     Dosage: 0.4 MG, QD
     Route: 048
  9. DESCOVY [Concomitant]
     Active Substance: EMTRICITABINE\TENOFOVIR ALAFENAMIDE FUMARATE
     Indication: Product used for unknown indication
     Dosage: 1 TABLET, 200MG-25 MG, QD
     Route: 048
  10. IBUPROFEN [Concomitant]
     Active Substance: IBUPROFEN
     Indication: Product used for unknown indication
     Dosage: 800 MG, BID
     Route: 048

REACTIONS (3)
  - Incorrect dose administered [Unknown]
  - Injection site urticaria [Recovered/Resolved]
  - Injection site urticaria [Recovering/Resolving]

NARRATIVE: CASE EVENT DATE: 20220723
